FAERS Safety Report 15493145 (Version 1)
Quarter: 2018Q4

REPORT INFORMATION
  Report Type: Spontaneous
  Country: US (occurrence: US)
  Receive Date: 20181004
  Receipt Date: 20181004
  Transmission Date: 20190205
  Serious: Yes (Hospitalization, Other)
  Sender: FDA-Public Use
  Company Number: None

PATIENT
  Age: 64 Year
  Sex: Female
  Weight: 59 kg

DRUGS (10)
  1. ALBUTEROL ER [Concomitant]
  2. FLUCONAZOLE. [Concomitant]
     Active Substance: FLUCONAZOLE
  3. ONDANSETRON [Concomitant]
     Active Substance: ONDANSETRON
  4. DEXAMETHASONE. [Concomitant]
     Active Substance: DEXAMETHASONE
  5. PROCHLORPERAZINE. [Concomitant]
     Active Substance: PROCHLORPERAZINE
  6. DIPHENHYDRAMINE. [Concomitant]
     Active Substance: DIPHENHYDRAMINE
  7. IBRANCE [Suspect]
     Active Substance: PALBOCICLIB
     Indication: BREAST CANCER
     Route: 048
     Dates: start: 20171127
  8. FERROUS SULFATE. [Concomitant]
     Active Substance: FERROUS SULFATE
  9. HYDROCODONE-APAP [Concomitant]
     Active Substance: ACETAMINOPHEN\HYDROCODONE
  10. MORPHINE [Concomitant]
     Active Substance: MORPHINE

REACTIONS (1)
  - Disease progression [None]

NARRATIVE: CASE EVENT DATE: 20181002
